FAERS Safety Report 20069495 (Version 2)
Quarter: 2021Q4

REPORT INFORMATION
  Report Type: Other
  Country: US (occurrence: None)
  Receive Date: 20211115
  Receipt Date: 20211218
  Transmission Date: 20220303
  Serious: Yes (Hospitalization)
  Sender: FDA-Public Use
  Company Number: US-ROCHE-2950076

PATIENT
  Sex: Male

DRUGS (2)
  1. OCREVUS [Suspect]
     Active Substance: OCRELIZUMAB
     Indication: Relapsing multiple sclerosis
     Dosage: LAST DATE OF INFUSION WAS 23/AUG/2021
     Route: 042
     Dates: start: 20190204
  2. PFIZER-BIONTECH COVID-19 VACCINE [Concomitant]
     Active Substance: TOZINAMERAN
     Dates: start: 202103

REACTIONS (3)
  - COVID-19 pneumonia [Recovered/Resolved]
  - Cerebral haemorrhage [Recovered/Resolved]
  - Urinary tract infection [Not Recovered/Not Resolved]
